FAERS Safety Report 7502556-9 (Version None)
Quarter: 2011Q2

REPORT INFORMATION
  Report Type: 
  Country: None (occurrence: None)
  Receive Date: 20110524
  Receipt Date: 20110524
  Transmission Date: 20111010
  Serious: No
  Sender: FDA-Public Use
  Company Number: None

PATIENT
  Sex: Female
  Weight: 94.3 kg

DRUGS (2)
  1. TAXOL [Suspect]
     Dosage: 270MG
  2. CARBOPLATIN [Suspect]
     Dosage: 487MG

REACTIONS (1)
  - PULMONARY EMBOLISM [None]
